FAERS Safety Report 14830130 (Version 3)
Quarter: 2018Q3

REPORT INFORMATION
  Report Type: Report from Study
  Country: None (occurrence: DE)
  Receive Date: 20180430
  Receipt Date: 20180712
  Transmission Date: 20181010
  Serious: No
  Sender: FDA-Public Use
  Company Number: DE-BAUSCH-BL-2017-035036

PATIENT
  Age: 78 Year
  Sex: Male
  Weight: 55 kg

DRUGS (29)
  1. DEXAMETHASONE. [Suspect]
     Active Substance: DEXAMETHASONE
     Dosage: 20 MG PER WEEK
     Route: 048
     Dates: start: 20171109, end: 20171116
  2. DEXAMETHASONE. [Suspect]
     Active Substance: DEXAMETHASONE
     Dosage: 20 MG PER WEEK
     Route: 048
     Dates: start: 20171020
  3. DEXAMETHASONE. [Suspect]
     Active Substance: DEXAMETHASONE
     Dosage: 20 MG PER WEEK
     Route: 065
     Dates: start: 20180105
  4. DARATUMUMAB [Concomitant]
     Active Substance: DARATUMUMAB
     Indication: PRODUCT USED FOR UNKNOWN INDICATION
     Route: 065
  5. REVLIMID [Suspect]
     Active Substance: LENALIDOMIDE
     Indication: PLASMA CELL MYELOMA
     Dosage: 525 MG FOR 21 DAYS
     Route: 048
     Dates: start: 20170929, end: 20171018
  6. MORPHIN [Concomitant]
     Active Substance: MORPHINE
     Indication: PRODUCT USED FOR UNKNOWN INDICATION
     Dosage: 10 MG
     Route: 048
  7. NOVAMINSULFON [Concomitant]
     Active Substance: METAMIZOLE
     Indication: PRODUCT USED FOR UNKNOWN INDICATION
     Dosage: WHEN NEEDED
     Route: 048
  8. DEXAMETHASONE. [Suspect]
     Active Substance: DEXAMETHASONE
     Dosage: 20 MG PER WEEK
     Route: 048
     Dates: start: 20171116
  9. DEXAMETHASONE. [Suspect]
     Active Substance: DEXAMETHASONE
     Dosage: 20 MG PER WEEK
     Route: 065
     Dates: start: 20180125
  10. DEXAMETHASONE. [Suspect]
     Active Substance: DEXAMETHASONE
     Dosage: 20 MG PER WEEK
     Route: 065
     Dates: start: 20180112
  11. DEXAMETHASONE. [Suspect]
     Active Substance: DEXAMETHASONE
     Dosage: 20 MG PER WEEK
     Route: 065
     Dates: start: 20171219
  12. DEXAMETHASONE. [Suspect]
     Active Substance: DEXAMETHASONE
     Dosage: 20 MG PER WEEK
     Route: 065
     Dates: start: 20171207
  13. DEXAMETHASONE. [Suspect]
     Active Substance: DEXAMETHASONE
     Dosage: 20 MG PER WEEK
     Route: 065
     Dates: start: 20171214
  14. DEXAMETHASONE. [Suspect]
     Active Substance: DEXAMETHASONE
     Dosage: 20 MG PER WEEK
     Route: 065
     Dates: start: 20180201
  15. REVLIMID [Suspect]
     Active Substance: LENALIDOMIDE
     Dosage: 525 MG FOR 21 DAYS
     Route: 048
     Dates: start: 20171026, end: 20171115
  16. BORTEZOMIB. [Concomitant]
     Active Substance: BORTEZOMIB
     Indication: PRODUCT USED FOR UNKNOWN INDICATION
     Route: 065
  17. DEXAMETHASONE. [Suspect]
     Active Substance: DEXAMETHASONE
     Dosage: 20 MG PER WEEK
     Route: 048
     Dates: start: 20171102
  18. DEXAMETHASONE. [Suspect]
     Active Substance: DEXAMETHASONE
     Dosage: 20 MG PER WEEK
     Route: 065
     Dates: start: 20180208
  19. REVLIMID [Suspect]
     Active Substance: LENALIDOMIDE
     Dosage: 420 MG FOR 21 DAYS
     Route: 048
     Dates: start: 20180125, end: 20180214
  20. DEXAMETHASONE. [Suspect]
     Active Substance: DEXAMETHASONE
     Dosage: 20 MG PER WEEK
     Route: 048
     Dates: start: 20171006
  21. DEXAMETHASONE. [Suspect]
     Active Substance: DEXAMETHASONE
     Dosage: 20 MG PER WEEK
     Route: 065
     Dates: start: 20171229
  22. DEXAMETHASONE. [Suspect]
     Active Substance: DEXAMETHASONE
     Dosage: 20 MG PER WEEK
     Route: 048
     Dates: start: 20171130
  23. DEXAMETHASONE. [Suspect]
     Active Substance: DEXAMETHASONE
     Dosage: 20 MG PER WEEK
     Route: 048
     Dates: start: 20171013
  24. ZOMETA [Concomitant]
     Active Substance: ZOLEDRONIC ACID
     Indication: PROPHYLAXIS
     Dosage: 4 MG PER MONTH
     Route: 041
     Dates: start: 20180124
  25. ACETYLSALICYLIC ACID [Concomitant]
     Active Substance: ASPIRIN
     Indication: PRODUCT USED FOR UNKNOWN INDICATION
     Route: 048
  26. DEXAMETHASONE. [Suspect]
     Active Substance: DEXAMETHASONE
     Indication: PLASMA CELL MYELOMA
     Dosage: 20 MG PER WEEK
     Route: 048
     Dates: start: 20170929
  27. DEXAMETHASONE. [Suspect]
     Active Substance: DEXAMETHASONE
     Dosage: 20 MG PER WEEK
     Route: 048
     Dates: start: 20171026
  28. DEXAMETHASONE. [Suspect]
     Active Substance: DEXAMETHASONE
     Route: 065
     Dates: start: 20180226
  29. DEXAMETHASONE. [Suspect]
     Active Substance: DEXAMETHASONE
     Dosage: 20 MG PER WEEK
     Route: 065
     Dates: start: 20180215

REACTIONS (3)
  - Leukopenia [Recovered/Resolved]
  - Anaemia [Not Recovered/Not Resolved]
  - Thrombocytopenia [Not Recovered/Not Resolved]

NARRATIVE: CASE EVENT DATE: 20171122
